FAERS Safety Report 5269966-4 (Version None)
Quarter: 2007Q1

REPORT INFORMATION
  Report Type: 
  Country: None (occurrence: None)
  Receive Date: 20061212
  Receipt Date: 20060517
  Transmission Date: 20070707
  Serious: No
  Sender: FDA-Public Use
  Company Number: RS006021-USA

PATIENT
  Age: 61 Year
  Sex: Female

DRUGS (5)
  1. ACIPHEX [Suspect]
     Indication: GASTROOESOPHAGEAL REFLUX DISEASE
     Dosage: 20 MG, AS REQUIRED;ORAL
     Route: 048
     Dates: start: 20040101, end: 20040101
  2. ACIPHEX [Suspect]
     Indication: GASTROOESOPHAGEAL REFLUX DISEASE
     Dosage: 20 MG, AS REQUIRED;ORAL
     Route: 048
     Dates: start: 20060101, end: 20060401
  3. NORVASC [Concomitant]
  4. SINGULAIR [Concomitant]
  5. COMBIVENT [Concomitant]

REACTIONS (1)
  - NEPHRITIS INTERSTITIAL [None]
